FAERS Safety Report 8429838-0 (Version None)
Quarter: 2012Q2

REPORT INFORMATION
  Report Type: 
  Country: None (occurrence: None)
  Receive Date: 20120612
  Receipt Date: 20120529
  Transmission Date: 20120825
  Serious: Yes (Death, Other)
  Sender: FDA-Public Use
  Company Number: US-WATSON-2012-09739

PATIENT
  Age: 37 Year
  Sex: Female

DRUGS (2)
  1. DIVALPROEX SODIUM [Suspect]
     Indication: AGITATION
  2. DIVALPROEX SODIUM [Suspect]
     Indication: DELUSION
     Dosage: 500 MG, DAILY
     Route: 065

REACTIONS (7)
  - LIVER FUNCTION TEST ABNORMAL [None]
  - PROTHROMBIN TIME PROLONGED [None]
  - BRAIN OEDEMA [None]
  - AMMONIA INCREASED [None]
  - INTERNATIONAL NORMALISED RATIO INCREASED [None]
  - BRAIN HERNIATION [None]
  - HEPATOTOXICITY [None]
